FAERS Safety Report 10565815 (Version 1)
Quarter: 2014Q4

REPORT INFORMATION
  Report Type: Spontaneous
  Country: US (occurrence: US)
  Receive Date: 20141105
  Receipt Date: 20141105
  Transmission Date: 20150529
  Serious: Yes (Hospitalization, Disabling)
  Sender: FDA-Public Use
  Company Number: US-SA-2014SA149415

PATIENT
  Age: 54 Year
  Sex: Male

DRUGS (4)
  1. HUMALOG [Concomitant]
     Active Substance: INSULIN LISPRO
     Dosage: DURING THE DAYTIME ON SLIDING SCALE.
  2. LANTUS SOLOSTAR [Suspect]
     Active Substance: INSULIN GLARGINE
     Indication: TYPE 2 DIABETES MELLITUS
     Dosage: DOSE:44 UNIT(S)
     Route: 065
     Dates: start: 2010
  3. SOLOSTAR [Concomitant]
     Active Substance: DEVICE
  4. LANTUS SOLOSTAR [Suspect]
     Active Substance: INSULIN GLARGINE
     Indication: TYPE 2 DIABETES MELLITUS
     Route: 065
     Dates: start: 2002

REACTIONS (7)
  - Lung neoplasm malignant [Unknown]
  - Disability [Unknown]
  - Brain oedema [Unknown]
  - Anal cancer [Unknown]
  - Colon cancer [Unknown]
  - Brain neoplasm malignant [Unknown]
  - Seizure [Unknown]

NARRATIVE: CASE EVENT DATE: 200209
